FAERS Safety Report 11723168 (Version 2)
Quarter: 2016Q3

REPORT INFORMATION
  Report Type: Spontaneous
  Country: BE (occurrence: BE)
  Receive Date: 20151111
  Receipt Date: 20160830
  Transmission Date: 20161109
  Serious: Yes (Congenital Anomaly, Other)
  Sender: FDA-Public Use
  Company Number: BE-BRISTOL-MYERS SQUIBB COMPANY-2001COU1684

PATIENT
  Sex: Female

DRUGS (1)
  1. COUMADIN [Suspect]
     Active Substance: WARFARIN SODIUM
     Indication: PRODUCT USED FOR UNKNOWN INDICATION
     Dosage: UNK
     Route: 064

REACTIONS (6)
  - Congenital hearing disorder [Unknown]
  - Chondrodystrophy [Unknown]
  - Brachydactyly [Unknown]
  - Foetal exposure during pregnancy [Unknown]
  - Congenital nose malformation [Unknown]
  - Talipes [Unknown]
